FAERS Safety Report 24582637 (Version 4)
Quarter: 2024Q4

REPORT INFORMATION
  Report Type: Spontaneous
  Country: US (occurrence: US)
  Receive Date: 20241106
  Receipt Date: 20241223
  Transmission Date: 20250114
  Serious: Yes (Other)
  Sender: ALVOGEN
  Company Number: US-ALVOGEN-2024095756

PATIENT

DRUGS (1)
  1. BUPRENORPHINE AND NALOXONE [Suspect]
     Active Substance: BUPRENORPHINE HYDROCHLORIDE\NALOXONE HYDROCHLORIDE
     Indication: Product used for unknown indication
     Dosage: FOR OVER 3 YRS, 2 FILM STRIPS A DAY 12 MG AND 8 MG?EXP: DEC-2025?L6 4010 10.41
     Route: 060

REACTIONS (7)
  - Rectal cancer [Recovering/Resolving]
  - Tooth injury [Unknown]
  - Dental caries [Unknown]
  - Tooth fracture [Unknown]
  - Tooth loss [Unknown]
  - Product quality issue [Unknown]
  - Drug ineffective [Unknown]
